FAERS Safety Report 22193030 (Version 1)
Quarter: 2023Q2

REPORT INFORMATION
  Report Type: Spontaneous
  Country: US (occurrence: US)
  Receive Date: 20230410
  Receipt Date: 20230410
  Transmission Date: 20230721
  Serious: No
  Sender: FDA-Public Use
  Company Number: US-THEA-2023000055

PATIENT
  Sex: Female

DRUGS (3)
  1. ZIOPTAN [Suspect]
     Active Substance: TAFLUPROST
     Indication: Product used for unknown indication
     Dosage: BOTH EYES
     Route: 047
  2. PRAVASTATIN [Concomitant]
     Active Substance: PRAVASTATIN
     Indication: Product used for unknown indication
  3. IRBESARTAN [Concomitant]
     Active Substance: IRBESARTAN
     Indication: Product used for unknown indication

REACTIONS (2)
  - Dizziness [Unknown]
  - Syncope [Unknown]
